FAERS Safety Report 7434948-0 (Version None)
Quarter: 2011Q2

REPORT INFORMATION
  Report Type: 
  Country: None (occurrence: None)
  Receive Date: 20110425
  Receipt Date: 20110420
  Transmission Date: 20111010
  Serious: Yes (Disabling)
  Sender: FDA-Public Use
  Company Number: NL-ABBOTT-11P-114-0713509-00

PATIENT
  Sex: Male
  Weight: 74 kg

DRUGS (10)
  1. SPIRONOLACTONE [Concomitant]
     Indication: OEDEMA
     Dosage: 1 UNIT DAILY, 25 MG
     Route: 048
  2. LUCRIN DEPOT 30 MG [Suspect]
     Indication: PROSTATE CANCER
     Dates: start: 20091005
  3. BUMETANIDE [Concomitant]
     Indication: OEDEMA
     Dosage: 1 UNIT DAILY, 1 MG
     Route: 048
  4. CALCIUM CARBONATE W/COLECALCIFEROL [Concomitant]
     Indication: OSTEOPOROSIS
     Dosage: 1.25G/400IU - 1 UNIT DAILY
     Route: 048
     Dates: start: 20060101
  5. ESOMEPRAZOLE EC [Concomitant]
     Indication: PROPHYLAXIS
     Dosage: 20 MG, 1 UNIT DAILY
     Route: 048
  6. HYDROXYCOBALAMINE FLUID FOR INJECTION 500 MCG/ML AMPOULE 2 ML [Concomitant]
     Indication: VITAMIN B12
     Route: 048
  7. LUCRIN DEPOT 11.25 MG [Suspect]
     Indication: PROSTATE CANCER
     Route: 058
     Dates: start: 20051212, end: 20090706
  8. ESOMEPRAZOLE EC [Concomitant]
     Indication: GASTRIC DISORDER
  9. FERROUS FUMARATE [Concomitant]
     Indication: IRON DEFICIENCY
     Dosage: 1 UNIT DAILY, 200 MG
     Route: 048
  10. RISEDRONIC ACID COATED [Concomitant]
     Indication: OSTEOPOROSIS
     Dosage: 1 UNIT WEEKLY, 35 MG
     Route: 048
     Dates: start: 20060101

REACTIONS (3)
  - HERPES ZOSTER [None]
  - FRACTURE [None]
  - INJECTION SITE REACTION [None]
